FAERS Safety Report 14476557 (Version 1)
Quarter: 2018Q1

REPORT INFORMATION
  Report Type: Spontaneous
  Country: US (occurrence: US)
  Receive Date: 20180201
  Receipt Date: 20180201
  Transmission Date: 20180509
  Serious: No
  Sender: FDA-Public Use
  Company Number: US-SA-2017SA226037

PATIENT
  Age: 78 Year
  Sex: Female

DRUGS (13)
  1. CLOPIDOGREL [Concomitant]
     Active Substance: CLOPIDOGREL BISULFATE
     Dosage: 75 MG
     Route: 065
  2. ACICLOVIR [Concomitant]
     Active Substance: ACYCLOVIR
     Dosage: 400
     Route: 065
  3. BIOTIN [Concomitant]
     Active Substance: BIOTIN
     Route: 065
  4. TURMERIC [Concomitant]
     Active Substance: HERBALS\TURMERIC
     Route: 065
  5. SODIUM BICARBONATE. [Concomitant]
     Active Substance: SODIUM BICARBONATE
     Route: 065
  6. PROPRANOLOL [Concomitant]
     Active Substance: PROPRANOLOL HYDROCHLORIDE
     Dosage: 10 MG
     Route: 065
  7. ALIROCUMAB PREFILLED PEN [Suspect]
     Active Substance: ALIROCUMAB
     Indication: BLOOD LACTATE DEHYDROGENASE
     Dates: start: 201705, end: 201710
  8. SERTRALINE [Concomitant]
     Active Substance: SERTRALINE HYDROCHLORIDE
     Dosage: 50 MG
     Route: 065
  9. PRALUENT [Suspect]
     Active Substance: ALIROCUMAB
     Indication: BLOOD LACTATE DEHYDROGENASE
     Route: 058
     Dates: start: 201705, end: 201710
  10. PRALUENT [Suspect]
     Active Substance: ALIROCUMAB
     Indication: BLOOD CHOLESTEROL INCREASED
     Route: 058
     Dates: start: 201705, end: 201710
  11. ALIROCUMAB PREFILLED PEN [Suspect]
     Active Substance: ALIROCUMAB
     Indication: BLOOD CHOLESTEROL INCREASED
     Dates: start: 201705, end: 201710
  12. PANTOPRAZOLE [Concomitant]
     Active Substance: PANTOPRAZOLE
     Dosage: 40 MG
     Route: 065
  13. GABAPENTIN. [Concomitant]
     Active Substance: GABAPENTIN
     Dosage: 300MG
     Route: 065

REACTIONS (3)
  - Tremor [Recovered/Resolved]
  - Cognitive disorder [Recovered/Resolved]
  - Asthenia [Recovered/Resolved]

NARRATIVE: CASE EVENT DATE: 2017
